FAERS Safety Report 16380932 (Version 1)
Quarter: 2019Q2

REPORT INFORMATION
  Report Type: Spontaneous
  Country: US (occurrence: US)
  Receive Date: 20190602
  Receipt Date: 20190602
  Transmission Date: 20190711
  Serious: No
  Sender: FDA-Public Use
  Company Number: US-JNJFOC-20190522620

PATIENT
  Sex: Female

DRUGS (5)
  1. SEROQUEL [Concomitant]
     Active Substance: QUETIAPINE FUMARATE
     Indication: SLEEP DISORDER
     Route: 065
  2. ORTHO MICRONOR [Suspect]
     Active Substance: NORETHINDRONE
     Indication: VON WILLEBRAND^S DISEASE
     Route: 048
  3. SINGULAIR [Concomitant]
     Active Substance: MONTELUKAST SODIUM
     Indication: MULTIPLE ALLERGIES
     Route: 065
  4. PREVACID [Concomitant]
     Active Substance: LANSOPRAZOLE
     Route: 065
  5. BUSPAR [Concomitant]
     Active Substance: BUSPIRONE HYDROCHLORIDE
     Route: 065

REACTIONS (4)
  - Metrorrhagia [Not Recovered/Not Resolved]
  - Off label use [Unknown]
  - Product administration error [Unknown]
  - Product use in unapproved indication [Unknown]
